FAERS Safety Report 9937378 (Version 1)
Quarter: 2014Q1

REPORT INFORMATION
  Report Type: Spontaneous
  Country: US (occurrence: US)
  Receive Date: 20140303
  Receipt Date: 20140303
  Transmission Date: 20141002
  Serious: No
  Sender: FDA-Public Use
  Company Number: US-009507513-1402USA013410

PATIENT
  Age: 67 Year
  Sex: Female

DRUGS (1)
  1. FOSAMAX [Suspect]
     Dosage: UNK
     Route: 048

REACTIONS (2)
  - Tooth disorder [Not Recovered/Not Resolved]
  - Tooth extraction [Not Recovered/Not Resolved]
